FAERS Safety Report 8221044-8 (Version None)
Quarter: 2012Q1

REPORT INFORMATION
  Report Type: 
  Country: None (occurrence: None)
  Receive Date: 20120320
  Receipt Date: 20120306
  Transmission Date: 20120608
  Serious: Yes (Life-Threatening)
  Sender: FDA-Public Use
  Company Number: IN-MYLANLABS-2012S1005268

PATIENT
  Age: 76 Year
  Sex: Male
  Weight: 56 kg

DRUGS (12)
  1. DEXMEDETOMODINE HYDROCHLORIDE [Interacting]
     Indication: CRANIOTOMY
     Dosage: OVER 10 MINUTES
     Route: 040
  2. GLYCOPYRROLATE [Concomitant]
     Indication: CRANIOTOMY
     Route: 042
  3. DEXMEDETOMODINE HYDROCHLORIDE [Interacting]
     Dosage: 0.5 MICROG/KG/HOUR
     Route: 042
  4. PROPOFOL [Interacting]
     Indication: MAINTENANCE OF ANAESTHESIA
     Route: 042
  5. DEXMEDETOMODINE HYDROCHLORIDE [Interacting]
     Indication: MAINTENANCE OF ANAESTHESIA
     Dosage: OVER 10 MINUTES
     Route: 040
  6. DEXMEDETOMODINE HYDROCHLORIDE [Interacting]
     Dosage: 0.5 MICROG/KG/HOUR
     Route: 042
  7. ENTONOX [Concomitant]
     Indication: MAINTENANCE OF ANAESTHESIA
     Route: 065
  8. PROPOFOL [Interacting]
     Dosage: 10 MG/KG/HOUR
     Route: 042
  9. PROPOFOL [Interacting]
     Dosage: 10 MG/KG/HOUR
     Route: 042
  10. FENTANYL [Suspect]
     Indication: INDUCTION OF ANAESTHESIA
     Route: 042
  11. PROPOFOL [Interacting]
     Indication: INDUCTION OF ANAESTHESIA
     Route: 042
  12. MIDAZOLAM [Concomitant]
     Indication: CRANIOTOMY
     Route: 042

REACTIONS (2)
  - CARDIAC ARREST [None]
  - POTENTIATING DRUG INTERACTION [None]
